FAERS Safety Report 13500143 (Version 3)
Quarter: 2017Q4

REPORT INFORMATION
  Report Type: Spontaneous
  Country: US (occurrence: US)
  Receive Date: 20170501
  Receipt Date: 20171214
  Transmission Date: 20180320
  Serious: Yes (Disabling, Other)
  Sender: FDA-Public Use
  Company Number: US-PFIZER INC-2016298440

PATIENT
  Age: 37 Year
  Sex: Female

DRUGS (5)
  1. LYRICA [Suspect]
     Active Substance: PREGABALIN
     Dosage: 50 MG, UNK
  2. LYRICA [Suspect]
     Active Substance: PREGABALIN
     Dosage: 750 MG, DAILY [150 MG 5 TIMES A DAY CAPSULES]
     Route: 048
     Dates: start: 201212
  3. LYRICA [Suspect]
     Active Substance: PREGABALIN
     Dosage: 600 MG, UNK
  4. LYRICA [Suspect]
     Active Substance: PREGABALIN
     Dosage: 550 MG, DAILY
  5. LYRICA [Suspect]
     Active Substance: PREGABALIN
     Indication: SMALL FIBRE NEUROPATHY
     Dosage: 150 MG, UNK

REACTIONS (14)
  - Feeling hot [Not Recovered/Not Resolved]
  - Dysphemia [Unknown]
  - Erythema [Unknown]
  - Loss of personal independence in daily activities [Not Recovered/Not Resolved]
  - Skin warm [Unknown]
  - Intentional product misuse [Unknown]
  - Disease progression [Unknown]
  - Drug dose omission [Unknown]
  - Sunburn [Unknown]
  - Small fibre neuropathy [Unknown]
  - Pain [Unknown]
  - Disturbance in attention [Unknown]
  - Prescribed overdose [Not Recovered/Not Resolved]
  - Aphasia [Not Recovered/Not Resolved]

NARRATIVE: CASE EVENT DATE: 201212
